FAERS Safety Report 4486704-3 (Version None)
Quarter: 2004Q4

REPORT INFORMATION
  Report Type: 
  Country: None (occurrence: None)
  Receive Date: 20041021
  Receipt Date: 20041001
  Transmission Date: 20050328
  Serious: Yes (Death)
  Sender: FDA-Public Use
  Company Number: DE_040914270

PATIENT
  Age: 52 Year
  Sex: Male

DRUGS (2)
  1. ZYPREXA [Suspect]
     Indication: SCHIZOPHRENIA
     Dosage: 15 MG DAY
  2. ATORVASTATIN CALCIUM [Concomitant]

REACTIONS (2)
  - CARDIAC FAILURE [None]
  - CEREBRAL INFARCTION [None]
